FAERS Safety Report 4274433-0 (Version None)
Quarter: 2004Q1

REPORT INFORMATION
  Report Type: 
  Country: None (occurrence: None)
  Receive Date: 20040120
  Receipt Date: 20030414
  Transmission Date: 20041129
  Serious: No
  Sender: FDA-Public Use
  Company Number: US-BRISTOL-MYERS SQUIBB COMPANY-12241840

PATIENT
  Age: 65 Year
  Sex: Female
  Weight: 59 kg

DRUGS (4)
  1. IFOSFAMIDE [Suspect]
     Indication: SARCOMA
     Dosage: 5 DAYS PER CYCLE
     Dates: start: 20030410, end: 20030410
  2. RESTORIL [Suspect]
     Dosage: IN THE EVENING
  3. EVISTA [Concomitant]
  4. ZOLOFT [Concomitant]

REACTIONS (2)
  - DIZZINESS [None]
  - HYPOTENSION [None]
